FAERS Safety Report 9163163 (Version 1)
Quarter: 2013Q1

REPORT INFORMATION
  Report Type: Report from Study
  Country: AU (occurrence: AU)
  Receive Date: 20130314
  Receipt Date: 20130314
  Transmission Date: 20140127
  Serious: Yes (Other)
  Sender: FDA-Public Use
  Company Number: AU-ROCHE-1200827

PATIENT
  Age: 29 Year
  Sex: Female

DRUGS (1)
  1. ACTEMRA [Suspect]
     Indication: RHEUMATOID ARTHRITIS
     Route: 042
     Dates: start: 20110627

REACTIONS (4)
  - Malaise [Recovering/Resolving]
  - Nasal congestion [Unknown]
  - Cough [Unknown]
  - Feeling abnormal [Unknown]
